FAERS Safety Report 5006262-4 (Version None)
Quarter: 2006Q2

REPORT INFORMATION
  Report Type: 
  Country: None (occurrence: None)
  Receive Date: 20060516
  Receipt Date: 20060504
  Transmission Date: 20061013
  Serious: Yes (Death)
  Sender: FDA-Public Use
  Company Number: 224722

PATIENT
  Age: 46 Year
  Sex: Female
  Weight: 142 kg

DRUGS (11)
  1. RITUXIMAB OR PLACEBO (RITUXIMAB) CON FOR SOLUTION FOR  INFUSION [Suspect]
     Indication: SYSTEMIC LUPUS ERYTHEMATOSUS
     Dosage: 1000 MG, DAYS 1 +15, INTRAVENOUS
     Route: 042
     Dates: start: 20060406, end: 20060420
  2. CELLCEPT [Concomitant]
  3. PREDNISONE TAB [Concomitant]
  4. PLAQUENIL [Concomitant]
  5. FOLIC ACID [Concomitant]
  6. PERCOCET [Concomitant]
  7. MUPIROCIN [Concomitant]
  8. CLOBETASOL PROPIONATE (CLOBETASOL PROPIONATE) [Concomitant]
  9. HYDROCHOROTHIAZIDE (HYDROCHLOROTHIAZIDE) [Concomitant]
  10. ASPIRIN [Concomitant]
  11. NITROGLYCERIN [Concomitant]

REACTIONS (9)
  - ANGINA PECTORIS [None]
  - ARTHRALGIA [None]
  - BLOOD POTASSIUM DECREASED [None]
  - BLOOD PRESSURE INCREASED [None]
  - ELECTROCARDIOGRAM QT PROLONGED [None]
  - ELECTROCARDIOGRAM T WAVE ABNORMAL [None]
  - EPIGASTRIC DISCOMFORT [None]
  - FEMUR FRACTURE [None]
  - OSTEONECROSIS [None]
